FAERS Safety Report 7076080-4 (Version None)
Quarter: 2010Q4

REPORT INFORMATION
  Report Type: 
  Country: None (occurrence: None)
  Receive Date: 20101101
  Receipt Date: 20101027
  Transmission Date: 20110411
  Serious: No
  Sender: FDA-Public Use
  Company Number: US-BIOGENIDEC-2010BI037200

PATIENT
  Age: 68 Year
  Sex: Female

DRUGS (4)
  1. AVONEX [Suspect]
     Indication: MULTIPLE SCLEROSIS
     Route: 030
     Dates: start: 20101006
  2. AVONEX [Suspect]
     Route: 030
     Dates: start: 20000501, end: 20010501
  3. TOPROL-XL [Concomitant]
     Indication: HYPERTENSION
  4. NEURONTIN [Concomitant]
     Indication: MULTIPLE SCLEROSIS

REACTIONS (2)
  - DIARRHOEA [None]
  - INFLUENZA LIKE ILLNESS [None]
